FAERS Safety Report 7859755-6 (Version None)
Quarter: 2011Q4

REPORT INFORMATION
  Report Type: 
  Country: None (occurrence: None)
  Receive Date: 20111026
  Receipt Date: 20111026
  Transmission Date: 20120403
  Serious: Yes (Other)
  Sender: FDA-Public Use
  Company Number: None

PATIENT
  Age: 37 Year
  Sex: Male
  Weight: 90.7194 kg

DRUGS (1)
  1. LISTERINE ZERO MOUTHWASH CLEAN MINT (ORAL CARE PRODUCTS) LIQUID [Suspect]
     Indication: DENTAL DISORDER PROPHYLAXIS
     Dosage: 1 IN 1 DAY, ORAL
     Route: 048
     Dates: start: 20110919, end: 20110919

REACTIONS (2)
  - ORAL MUCOSAL EXFOLIATION [None]
  - ORAL DISCOMFORT [None]
